FAERS Safety Report 5087519-8 (Version None)
Quarter: 2006Q3

REPORT INFORMATION
  Report Type: 
  Country: None (occurrence: None)
  Receive Date: 20060824
  Receipt Date: 20060822
  Transmission Date: 20061208
  Serious: Yes (Hospitalization)
  Sender: FDA-Public Use
  Company Number: US-GLAXOSMITHKLINE-A0617680A

PATIENT
  Age: 65 Year
  Sex: Male

DRUGS (6)
  1. COREG [Suspect]
     Dosage: 25MG TWICE PER DAY
     Route: 048
     Dates: start: 19980101
  2. ANTIBIOTIC [Suspect]
     Indication: DRUG USE FOR UNKNOWN INDICATION
  3. DIGOXIN [Concomitant]
  4. ZESTRIL [Concomitant]
  5. FUROSEMIDE [Concomitant]
  6. COZAAR [Concomitant]

REACTIONS (6)
  - ANEURYSM [None]
  - BRAIN OPERATION [None]
  - CEREBROVASCULAR ACCIDENT [None]
  - DIARRHOEA [None]
  - LACTOSE INTOLERANCE [None]
  - VOMITING [None]
